FAERS Safety Report 4434932-5 (Version None)
Quarter: 2004Q3

REPORT INFORMATION
  Report Type: 
  Country: None (occurrence: None)
  Receive Date: 20040726
  Receipt Date: 20040507
  Transmission Date: 20050211
  Serious: Yes (Other)
  Sender: FDA-Public Use
  Company Number: USA040567026

PATIENT
  Age: 81 Year
  Sex: Female

DRUGS (1)
  1. FORTEO [Suspect]
     Indication: OSTEOPOROSIS

REACTIONS (2)
  - INJECTION SITE DERMATITIS [None]
  - SYNCOPE [None]
